FAERS Safety Report 20414294 (Version 2)
Quarter: 2022Q1

REPORT INFORMATION
  Report Type: Spontaneous
  Country: JP (occurrence: JP)
  Receive Date: 20220202
  Receipt Date: 20220228
  Transmission Date: 20220423
  Serious: Yes (Life-Threatening, Disabling, Other)
  Sender: FDA-Public Use
  Company Number: JP-NBI-J202201862BIPI

PATIENT
  Age: 7 Decade
  Sex: Male

DRUGS (1)
  1. DABIGATRAN ETEXILATE MESYLATE [Suspect]
     Active Substance: DABIGATRAN ETEXILATE MESYLATE
     Indication: Atrial fibrillation
     Route: 048

REACTIONS (1)
  - Cardiac tamponade [Recovered/Resolved with Sequelae]

NARRATIVE: CASE EVENT DATE: 20220127
